APPROVED DRUG PRODUCT: POLOCAINE
Active Ingredient: MEPIVACAINE HYDROCHLORIDE
Strength: 2%
Dosage Form/Route: INJECTABLE;INJECTION
Application: A089410 | Product #001
Applicant: FRESENIUS KABI USA LLC
Approved: Dec 1, 1986 | RLD: No | RS: Yes | Type: RX